FAERS Safety Report 11919779 (Version 2)
Quarter: 2016Q1

REPORT INFORMATION
  Report Type: Spontaneous
  Country: US (occurrence: US)
  Receive Date: 20160115
  Receipt Date: 20160325
  Transmission Date: 20160526
  Serious: No
  Sender: FDA-Public Use
  Company Number: US-009507513-1601USA004943

PATIENT
  Sex: Female

DRUGS (1)
  1. JANUVIA [Suspect]
     Active Substance: SITAGLIPTIN PHOSPHATE
     Indication: DIABETES MELLITUS
     Dosage: UNK
     Route: 048

REACTIONS (4)
  - Drug ineffective [Unknown]
  - Pain in extremity [Unknown]
  - Abdominal pain upper [Unknown]
  - Blood glucose fluctuation [Unknown]
